FAERS Safety Report 15696958 (Version 1)
Quarter: 2018Q4

REPORT INFORMATION
  Report Type: Spontaneous
  Country: US (occurrence: US)
  Receive Date: 20181206
  Receipt Date: 20181206
  Transmission Date: 20190205
  Serious: No
  Sender: FDA-Public Use
  Company Number: US-PFIZER INC-2018495466

PATIENT
  Age: 72 Year
  Sex: Female
  Weight: 64.86 kg

DRUGS (6)
  1. MIDAZOLAM [Suspect]
     Active Substance: MIDAZOLAM HYDROCHLORIDE
     Indication: AMNESIA
     Dosage: 7.5 MG, UNK
     Route: 042
     Dates: start: 20180809, end: 20180809
  2. MIDAZOLAM [Suspect]
     Active Substance: MIDAZOLAM HYDROCHLORIDE
     Indication: LIGHT ANAESTHESIA
     Dosage: 5 MG, UNK
     Route: 042
     Dates: start: 20180809, end: 20180809
  3. MIDAZOLAM [Suspect]
     Active Substance: MIDAZOLAM HYDROCHLORIDE
     Dosage: 10 MG, UNK
     Route: 042
     Dates: start: 20180809, end: 20180809
  4. FENTANYL CITRATE. [Suspect]
     Active Substance: FENTANYL CITRATE
     Indication: LIGHT ANAESTHESIA
     Dosage: 100 UG, UNK
     Route: 042
     Dates: start: 20180809, end: 20180809
  5. MIDAZOLAM [Suspect]
     Active Substance: MIDAZOLAM HYDROCHLORIDE
     Dosage: 12 MG, UNK
     Route: 042
     Dates: start: 20180809, end: 20180809
  6. FENTANYL CITRATE. [Suspect]
     Active Substance: FENTANYL CITRATE
     Indication: PAIN

REACTIONS (11)
  - Agitation [Unknown]
  - Fatigue [Unknown]
  - Memory impairment [Unknown]
  - Panic reaction [Unknown]
  - Nasopharyngitis [Not Recovered/Not Resolved]
  - Crying [Unknown]
  - Overdose [Unknown]
  - Feeling abnormal [Unknown]
  - Sedation [Unknown]
  - Malaise [Recovered/Resolved]
  - Asthenia [Recovered/Resolved]

NARRATIVE: CASE EVENT DATE: 20180809
